FAERS Safety Report 5622629-5 (Version None)
Quarter: 2008Q1

REPORT INFORMATION
  Report Type: 
  Country: None (occurrence: None)
  Receive Date: 20080211
  Receipt Date: 20080211
  Transmission Date: 20080703
  Serious: Yes (Hospitalization)
  Sender: FDA-Public Use
  Company Number: None

PATIENT
  Age: 79 Year
  Sex: Male

DRUGS (2)
  1. LORAZEPAM [Suspect]
     Dosage: 1MG BID PO
     Route: 048
     Dates: start: 20061101, end: 20071212
  2. CYCLOBENZAPRINE HCL [Suspect]
     Dosage: 10MG BID PO
     Route: 048
     Dates: start: 20060109, end: 20071212

REACTIONS (2)
  - CONFUSIONAL STATE [None]
  - MENTAL STATUS CHANGES [None]
